FAERS Safety Report 7877852-6 (Version None)
Quarter: 2011Q4

REPORT INFORMATION
  Report Type: 
  Country: None (occurrence: None)
  Receive Date: 20111031
  Receipt Date: 20111031
  Transmission Date: 20120403
  Serious: Yes (Other)
  Sender: FDA-Public Use
  Company Number: None

PATIENT
  Age: 51 Year
  Sex: Male
  Weight: 79.832 kg

DRUGS (2)
  1. ZETIA [Concomitant]
  2. CETIRIZINE HCL [Suspect]
     Indication: DRUG DISPENSING ERROR
     Dosage: 10MG
     Route: 048
     Dates: start: 20110923, end: 20111023

REACTIONS (8)
  - DRUG DISPENSING ERROR [None]
  - RASH [None]
  - SOMNOLENCE [None]
  - IMPAIRED WORK ABILITY [None]
  - SUICIDAL IDEATION [None]
  - MEDICATION ERROR [None]
  - WRONG DRUG ADMINISTERED [None]
  - FATIGUE [None]
